FAERS Safety Report 5360397-5 (Version None)
Quarter: 2007Q2

REPORT INFORMATION
  Report Type: 
  Country: None (occurrence: None)
  Receive Date: 20070614
  Receipt Date: 20070529
  Transmission Date: 20071010
  Serious: No
  Sender: FDA-Public Use
  Company Number: 013907

PATIENT
  Age: 63 Year
  Sex: Female

DRUGS (4)
  1. CLARAVIS [Suspect]
     Indication: KERATOSIS FOLLICULAR
     Dosage: SEE IMAGE
     Route: 048
     Dates: start: 20060601
  2. CLARAVIS [Suspect]
     Indication: KERATOSIS FOLLICULAR
     Dosage: SEE IMAGE
     Route: 048
     Dates: start: 20060601
  3. HUMULIN (INSULIN HUMAN, INSULIN ISOPHANE, HUMAN BIOSYNTHETIC [Concomitant]
  4. TEGRETOL [Concomitant]

REACTIONS (2)
  - ANGIOPATHY [None]
  - LEG AMPUTATION [None]
